FAERS Safety Report 22204491 (Version 2)
Quarter: 2023Q2

REPORT INFORMATION
  Report Type: Spontaneous
  Country: US (occurrence: US)
  Receive Date: 20230413
  Receipt Date: 20230417
  Transmission Date: 20230722
  Serious: No
  Sender: FDA-Public Use
  Company Number: US-SANOFI-01565960

PATIENT
  Age: 34 Year
  Sex: Male

DRUGS (1)
  1. DUPIXENT [Suspect]
     Active Substance: DUPILUMAB
     Indication: Nasal polyps
     Dosage: 300 MG, UNK
     Route: 058
     Dates: start: 20230406

REACTIONS (1)
  - Product preparation error [Unknown]

NARRATIVE: CASE EVENT DATE: 20230406
